FAERS Safety Report 8436310-0 (Version None)
Quarter: 2012Q2

REPORT INFORMATION
  Report Type: 
  Country: None (occurrence: None)
  Receive Date: 20120614
  Receipt Date: 20120601
  Transmission Date: 20120825
  Serious: No
  Sender: FDA-Public Use
  Company Number: US-ELI_LILLY_AND_COMPANY-US201206000820

PATIENT
  Age: 74 Year
  Sex: Female

DRUGS (4)
  1. SAVELLA [Concomitant]
     Dosage: UNK
     Dates: end: 20120601
  2. CYMBALTA [Suspect]
     Indication: PAIN
     Dosage: UNK
     Dates: end: 20120601
  3. CELEXA [Concomitant]
     Dosage: UNK
     Dates: end: 20120601
  4. NEURONTIN [Concomitant]
     Dosage: UNK
     Dates: end: 20120601

REACTIONS (3)
  - DRUG INTERACTION [None]
  - HEPATIC ENZYME INCREASED [None]
  - LIVER TENDERNESS [None]
